FAERS Safety Report 21134121 (Version 1)
Quarter: 2022Q3

REPORT INFORMATION
  Report Type: Spontaneous
  Country: CH (occurrence: None)
  Receive Date: 20220726
  Receipt Date: 20220726
  Transmission Date: 20221026
  Serious: Yes (Other)
  Sender: FDA-Public Use
  Company Number: CH-ROCHE-3144720

PATIENT
  Sex: Female

DRUGS (1)
  1. ACTEMRA [Suspect]
     Active Substance: TOCILIZUMAB
     Indication: Vasculitis
     Route: 065

REACTIONS (4)
  - Immunodeficiency common variable [Unknown]
  - Hypogammaglobulinaemia [Unknown]
  - Urinary tract infection [Unknown]
  - Off label use [Unknown]
